FAERS Safety Report 5663901-2 (Version None)
Quarter: 2008Q1

REPORT INFORMATION
  Report Type: 
  Country: None (occurrence: None)
  Receive Date: 20080311
  Receipt Date: 20080228
  Transmission Date: 20080703
  Serious: Yes (Death)
  Sender: FDA-Public Use
  Company Number: 2008JP001043

PATIENT
  Age: 21 Year
  Sex: Female

DRUGS (2)
  1. PROGRAF [Suspect]
     Indication: STEM CELL TRANSPLANT
  2. METHYLPREDNISOLONE [Concomitant]

REACTIONS (2)
  - ENCEPHALITIS HERPES [None]
  - HUMAN HERPESVIRUS 6 INFECTION [None]
